FAERS Safety Report 9596813 (Version 1)
Quarter: 2013Q4

REPORT INFORMATION
  Report Type: Spontaneous
  Country: GB (occurrence: GB)
  Receive Date: 20131004
  Receipt Date: 20131004
  Transmission Date: 20140711
  Serious: Yes (Hospitalization, Other)
  Sender: FDA-Public Use
  Company Number: GB-ASTRAZENECA-2013SE72257

PATIENT
  Age: 72 Year
  Sex: Male

DRUGS (8)
  1. OMEPRAZOLE [Suspect]
     Route: 048
     Dates: start: 20130909, end: 20130910
  2. ASPIRIN [Concomitant]
  3. ATORVASTATIN [Concomitant]
  4. BISOPROLOL [Concomitant]
  5. CLOPIDOGREL [Concomitant]
  6. EZETIMIBE [Concomitant]
  7. ISOSORBIDE [Concomitant]
  8. ZOPICLONE [Concomitant]

REACTIONS (9)
  - Dyspnoea [Recovering/Resolving]
  - Tachycardia [Recovering/Resolving]
  - Fatigue [Recovering/Resolving]
  - Chromaturia [Recovering/Resolving]
  - Asthenia [Recovering/Resolving]
  - Wheezing [Recovering/Resolving]
  - Dry mouth [Recovering/Resolving]
  - Lip swelling [Recovering/Resolving]
  - Vomiting [Recovering/Resolving]
